FAERS Safety Report 21675012 (Version 1)
Quarter: 2022Q4

REPORT INFORMATION
  Report Type: Other
  Country: MX (occurrence: None)
  Receive Date: 20221202
  Receipt Date: 20221202
  Transmission Date: 20230113
  Serious: Yes (Disabling)
  Sender: FDA-Public Use
  Company Number: MX-ROCHE-3230015

PATIENT
  Age: 55 Year
  Sex: Female
  Weight: 77 kg

DRUGS (1)
  1. GAZYVA [Suspect]
     Active Substance: OBINUTUZUMAB
     Indication: Follicular lymphoma
     Route: 042
     Dates: start: 20210722, end: 202207

REACTIONS (10)
  - Herpes zoster [Unknown]
  - Gait disturbance [Unknown]
  - Asthenia [Unknown]
  - Immune system disorder [Unknown]
  - Urticaria [Unknown]
  - Headache [Unknown]
  - Bedridden [Unknown]
  - Malaise [Unknown]
  - Weight decreased [Recovered/Resolved]
  - Gait inability [Recovered/Resolved]

NARRATIVE: CASE EVENT DATE: 20211001
